FAERS Safety Report 4736648-4 (Version None)
Quarter: 2005Q3

REPORT INFORMATION
  Report Type: 
  Country: None (occurrence: None)
  Receive Date: 20050808
  Receipt Date: 20050726
  Transmission Date: 20060218
  Serious: Yes (Disabling)
  Sender: FDA-Public Use
  Company Number: 2005AP04260

PATIENT
  Age: 39 Year
  Sex: Female

DRUGS (2)
  1. SEROQUEL [Suspect]
     Indication: DEPRESSION
     Route: 048
     Dates: start: 20050215
  2. DOTHIEPIN HYDROCHLORIDE [Concomitant]
     Route: 048

REACTIONS (2)
  - HEADACHE [None]
  - HYPERMETROPIA [None]
